FAERS Safety Report 8825003 (Version 2)
Quarter: 2015Q1

REPORT INFORMATION
  Report Type: Report from Study
  Country: US (occurrence: US)
  Receive Date: 20121004
  Receipt Date: 20150205
  Transmission Date: 20150721
  Serious: Yes (Other)
  Sender: FDA-Public Use
  Company Number: US-ROCHE-1134376

PATIENT
  Sex: Female
  Weight: 70.37 kg

DRUGS (11)
  1. BENADRYL [Concomitant]
     Active Substance: DIPHENHYDRAMINE HYDROCHLORIDE
  2. MIACALCIN [Concomitant]
     Active Substance: CALCITONIN SALMON
  3. FLUDARABINE [Concomitant]
     Active Substance: FLUDARABINE PHOSPHATE
     Route: 065
     Dates: start: 199209
  4. EVISTA [Concomitant]
     Active Substance: RALOXIFENE HYDROCHLORIDE
  5. RITUXAN [Suspect]
     Active Substance: RITUXIMAB
     Indication: CHRONIC LYMPHOCYTIC LEUKAEMIA
     Route: 042
     Dates: start: 199903
  6. CYTOXAN [Concomitant]
     Active Substance: CYCLOPHOSPHAMIDE
     Route: 065
     Dates: start: 19990408
  7. CLINORIL [Concomitant]
     Active Substance: SULINDAC
     Indication: BURSITIS
     Route: 048
  8. PRILOSEC [Concomitant]
     Active Substance: OMEPRAZOLE MAGNESIUM
     Route: 048
  9. ZITHROMAX [Concomitant]
     Active Substance: AZITHROMYCIN DIHYDRATE
  10. FLUDARA [Concomitant]
     Active Substance: FLUDARABINE PHOSPHATE
  11. VIOXX [Concomitant]
     Active Substance: ROFECOXIB
     Indication: BURSITIS
     Route: 065

REACTIONS (29)
  - Neck pain [Unknown]
  - Oedema peripheral [Unknown]
  - Asthenia [Unknown]
  - Leukocytosis [Unknown]
  - Dry eye [Unknown]
  - Osteoporosis [Unknown]
  - Rhinorrhoea [Unknown]
  - Fatigue [Unknown]
  - Bursitis [Recovered/Resolved]
  - Pain in extremity [Unknown]
  - Flank pain [Unknown]
  - Candida infection [Unknown]
  - Oral herpes [Unknown]
  - Upper-airway cough syndrome [Unknown]
  - Laryngeal pain [Unknown]
  - Weight increased [Unknown]
  - Night sweats [Unknown]
  - Tinnitus [Unknown]
  - Dyspepsia [Unknown]
  - Musculoskeletal chest pain [Unknown]
  - Blister [Unknown]
  - Lymphadenopathy [Unknown]
  - Dry skin [Unknown]
  - Diarrhoea [Recovered/Resolved]
  - Vision blurred [Unknown]
  - Dry mouth [Unknown]
  - Nocturia [Unknown]
  - Sinusitis [Recovering/Resolving]
  - Arthralgia [Unknown]
